FAERS Safety Report 7859986-5 (Version None)
Quarter: 2011Q4

REPORT INFORMATION
  Report Type: 
  Country: None (occurrence: None)
  Receive Date: 20111026
  Receipt Date: 20111026
  Transmission Date: 20120403
  Serious: Yes (Death)
  Sender: FDA-Public Use
  Company Number: None

PATIENT
  Age: 78 Year
  Sex: Male

DRUGS (5)
  1. FINASTERIDE [Concomitant]
  2. TAMSULOSIN HCL [Concomitant]
  3. FUROSEMIDE [Concomitant]
  4. OMEPRAZOLE [Concomitant]
  5. REVLIMID [Suspect]
     Indication: MYELOFIBROSIS
     Dosage: REVLIMID 10 MG DAILY X21D/28D ORALLY
     Route: 048
     Dates: start: 20110301

REACTIONS (5)
  - SEPSIS [None]
  - CARDIAC ARREST [None]
  - RESPIRATORY FAILURE [None]
  - HYPOTENSION [None]
  - CLOSTRIDIUM DIFFICILE COLITIS [None]
